FAERS Safety Report 9564922 (Version 1)
Quarter: 2013Q3

REPORT INFORMATION
  Report Type: Spontaneous
  Country: CN (occurrence: CN)
  Receive Date: 20130930
  Receipt Date: 20130930
  Transmission Date: 20140515
  Serious: Yes (Hospitalization)
  Sender: FDA-Public Use
  Company Number: PHHY2013CN106793

PATIENT
  Age: 11 Year
  Sex: Female

DRUGS (1)
  1. PARACETAMOL [Suspect]
     Indication: NASOPHARYNGITIS
     Dosage: 0.25 MG, UNK
     Route: 048
     Dates: start: 20110827

REACTIONS (20)
  - Hepatic encephalopathy [Unknown]
  - Acute hepatic failure [Unknown]
  - Tongue disorder [Unknown]
  - Yellow skin [Not Recovered/Not Resolved]
  - Fatigue [Unknown]
  - Decreased appetite [Recovering/Resolving]
  - Jaundice [Recovering/Resolving]
  - Nausea [Unknown]
  - Vomiting [Unknown]
  - Dizziness [Unknown]
  - Pyrexia [Recovered/Resolved]
  - Papule [Unknown]
  - Dry skin [Unknown]
  - Chromaturia [Unknown]
  - Acne [Recovering/Resolving]
  - Pulse abnormal [Unknown]
  - Irritability [Unknown]
  - Loss of consciousness [Unknown]
  - Prothrombin time prolonged [Unknown]
  - Prothrombin level decreased [Unknown]
